FAERS Safety Report 5430958-3 (Version None)
Quarter: 2007Q3

REPORT INFORMATION
  Report Type: 
  Country: None (occurrence: None)
  Receive Date: 20070830
  Receipt Date: 20070827
  Transmission Date: 20080115
  Serious: Yes (Hospitalization, Other)
  Sender: FDA-Public Use
  Company Number: PHNU2005DE01852

PATIENT
  Age: 72 Year
  Sex: Male

DRUGS (1)
  1. ZOMETA [Suspect]
     Indication: SARCOMA
     Dosage: 4 MG MONTHLY

REACTIONS (11)
  - ABSCESS DRAINAGE [None]
  - ABSCESS JAW [None]
  - BIOPSY SITE UNSPECIFIED ABNORMAL [None]
  - FISTULA REPAIR [None]
  - INFLAMMATION [None]
  - JAW OPERATION [None]
  - MENINGEAL DISORDER [None]
  - OSTEOMYELITIS CHRONIC [None]
  - PERIPHERAL NERVE OPERATION [None]
  - SCAR [None]
  - SEQUESTRECTOMY [None]
